FAERS Safety Report 5310824-4 (Version None)
Quarter: 2007Q2

REPORT INFORMATION
  Report Type: 
  Country: None (occurrence: None)
  Receive Date: 20070428
  Receipt Date: 20070418
  Transmission Date: 20071010
  Serious: Yes (Death, Hospitalization, Other)
  Sender: FDA-Public Use
  Company Number: US-PFIZER INC-2006139583

PATIENT
  Sex: Male

DRUGS (3)
  1. CELECOXIB [Suspect]
     Indication: OSTEOARTHRITIS
     Route: 048
     Dates: start: 19990406, end: 20001123
  2. CELECOXIB [Suspect]
     Indication: OSTEOPOROSIS
  3. VIOXX [Suspect]
     Route: 048
     Dates: start: 20001201, end: 20010429

REACTIONS (2)
  - DEPRESSION [None]
  - ISCHAEMIC STROKE [None]
